FAERS Safety Report 13163143 (Version 1)
Quarter: 2017Q1

REPORT INFORMATION
  Report Type: Spontaneous
  Country: US (occurrence: US)
  Receive Date: 20170129
  Receipt Date: 20170129
  Transmission Date: 20170428
  Serious: Yes (Other)
  Sender: FDA-Public Use
  Company Number: None

PATIENT
  Age: 60 Year
  Sex: Male
  Weight: 58.5 kg

DRUGS (1)
  1. LEVAQUIN [Suspect]
     Active Substance: LEVOFLOXACIN
     Indication: CHRONIC OBSTRUCTIVE PULMONARY DISEASE
     Dates: start: 20160411, end: 20160412

REACTIONS (5)
  - Feeling abnormal [None]
  - Pain in extremity [None]
  - Limb discomfort [None]
  - Tendon discomfort [None]
  - Quality of life decreased [None]

NARRATIVE: CASE EVENT DATE: 20160413
